FAERS Safety Report 4355210-9 (Version None)
Quarter: 2004Q2

REPORT INFORMATION
  Report Type: 
  Country: None (occurrence: None)
  Receive Date: 20040504
  Receipt Date: 20040426
  Transmission Date: 20050107
  Serious: Yes (Death, Hospitalization)
  Sender: FDA-Public Use
  Company Number: K200400640

PATIENT
  Age: 10 Month
  Sex: Male

DRUGS (1)
  1. QUIBRON-300 [Suspect]

REACTIONS (3)
  - COMA [None]
  - TEMPORAL LOBE EPILEPSY [None]
  - TONIC CONVULSION [None]
